FAERS Safety Report 5288689-9 (Version None)
Quarter: 2007Q2

REPORT INFORMATION
  Report Type: 
  Country: None (occurrence: None)
  Receive Date: 20070405
  Receipt Date: 20070328
  Transmission Date: 20071010
  Serious: Yes (Hospitalization)
  Sender: FDA-Public Use
  Company Number: US-ROCHE-490072

PATIENT
  Age: 50 Year
  Sex: Female
  Weight: 64 kg

DRUGS (2)
  1. CAPECITABINE [Suspect]
     Indication: RECTAL CANCER
     Dosage: (825 MG/M2 Q12 HRS)
     Route: 048
     Dates: start: 20070211, end: 20070304
  2. OXALIPLATIN [Suspect]
     Indication: RECTAL CANCER
     Dosage: (50 MG/M2)
     Route: 042
     Dates: start: 20070211, end: 20070305

REACTIONS (6)
  - ABDOMINAL PAIN [None]
  - BLOOD GLUCOSE INCREASED [None]
  - DECUBITUS ULCER [None]
  - DEHYDRATION [None]
  - DIARRHOEA [None]
  - PROCTITIS [None]
